FAERS Safety Report 6586563-9 (Version None)
Quarter: 2010Q1

REPORT INFORMATION
  Report Type: 
  Country: None (occurrence: None)
  Receive Date: 20100216
  Receipt Date: 20100216
  Transmission Date: 20100710
  Serious: Yes (Hospitalization)
  Sender: FDA-Public Use
  Company Number: None

PATIENT
  Age: 78 Year
  Sex: Male
  Weight: 131 kg

DRUGS (1)
  1. VANCOMYCIN [Suspect]
     Indication: INFECTION
     Dosage: 2000 MG 24 HR IV BOLUS
     Route: 040
     Dates: start: 20100212, end: 20100214

REACTIONS (2)
  - DRUG LEVEL DECREASED [None]
  - PRODUCT SUBSTITUTION ISSUE [None]
